FAERS Safety Report 15397821 (Version 1)
Quarter: 2018Q3

REPORT INFORMATION
  Report Type: Spontaneous
  Country: US (occurrence: US)
  Receive Date: 20180918
  Receipt Date: 20180918
  Transmission Date: 20181010
  Serious: No
  Sender: FDA-Public Use
  Company Number: US-CELGENEUS-USA-20180903907

PATIENT
  Age: 43 Year
  Sex: Male

DRUGS (3)
  1. OTEZLA [Suspect]
     Active Substance: APREMILAST
     Indication: PSORIASIS
     Dosage: 60 MILLIGRAM
     Route: 048
     Dates: start: 20180711
  2. OTEZLA [Suspect]
     Active Substance: APREMILAST
     Dosage: 60 MILLIGRAM
     Route: 048
     Dates: start: 201809
  3. OTEZLA [Suspect]
     Active Substance: APREMILAST
     Route: 048
     Dates: start: 201809

REACTIONS (6)
  - Gastrooesophageal reflux disease [Unknown]
  - Incorrect dose administered [Unknown]
  - Headache [Unknown]
  - Weight decreased [Unknown]
  - Sinus disorder [Unknown]
  - Nausea [Unknown]

NARRATIVE: CASE EVENT DATE: 201809
